FAERS Safety Report 4586679-2 (Version None)
Quarter: 2005Q1

REPORT INFORMATION
  Report Type: 
  Country: None (occurrence: None)
  Receive Date: 20050218
  Receipt Date: 20041216
  Transmission Date: 20050727
  Serious: Yes (Life-Threatening)
  Sender: FDA-Public Use
  Company Number: US-BRISTOL-MYERS SQUIBB COMPANY-12798401

PATIENT
  Age: 50 Year
  Sex: Female

DRUGS (2)
  1. PARAPLATIN [Suspect]
     Indication: OVARIAN CANCER
     Dosage: 6 CYCLES IN 2001
     Dates: start: 20030101, end: 20030101
  2. PACLITAXEL [Suspect]
     Indication: OVARIAN CANCER
     Dosage: 6 CYCLES IN 2001
     Dates: start: 20030101, end: 20030101

REACTIONS (1)
  - MYELODYSPLASTIC SYNDROME [None]
